FAERS Safety Report 5631622-8 (Version None)
Quarter: 2008Q1

REPORT INFORMATION
  Report Type: 
  Country: None (occurrence: None)
  Receive Date: 20080220
  Receipt Date: 20080213
  Transmission Date: 20080703
  Serious: Yes (Other)
  Sender: FDA-Public Use
  Company Number: GB-SP-2008-00503

PATIENT
  Age: 61 Year
  Sex: Female

DRUGS (2)
  1. IMMUCYST [Suspect]
     Indication: BLADDER CANCER
     Route: 043
  2. IMMUCYST [Suspect]
     Route: 043

REACTIONS (5)
  - BLADDER DISORDER [None]
  - DEPRESSION [None]
  - DYSURIA [None]
  - HAEMORRHAGE URINARY TRACT [None]
  - POLLAKIURIA [None]
